FAERS Safety Report 6036205-6 (Version None)
Quarter: 2009Q1

REPORT INFORMATION
  Report Type: 
  Country: None (occurrence: None)
  Receive Date: 20090113
  Receipt Date: 20090107
  Transmission Date: 20090719
  Serious: No
  Sender: FDA-Public Use
  Company Number: US-B.I. PHARMACEUTICALS,INC./RIDGEFIELD-2009-BP-00181BP

PATIENT
  Age: 73 Year
  Sex: Male

DRUGS (6)
  1. MIRAPEX [Suspect]
     Indication: RESTLESS LEGS SYNDROME
     Route: 048
     Dates: start: 20080201
  2. MONOPRIL [Concomitant]
     Indication: BLOOD PRESSURE INCREASED
  3. SYNTHROID [Concomitant]
     Indication: HYPOTHYROIDISM
  4. DALMANE [Concomitant]
     Indication: INSOMNIA
  5. HYDROCODONE BITARTRATE [Concomitant]
     Indication: BACK PAIN
  6. KLONOPIN [Concomitant]
     Indication: ANXIETY

REACTIONS (1)
  - RESTLESS LEGS SYNDROME [None]
